FAERS Safety Report 16011034 (Version 1)
Quarter: 2019Q1

REPORT INFORMATION
  Report Type: Spontaneous
  Country: GB (occurrence: GB)
  Receive Date: 20190227
  Receipt Date: 20190227
  Transmission Date: 20190418
  Serious: Yes (Other)
  Sender: FDA-Public Use
  Company Number: GB-ACCORD-109710

PATIENT
  Age: 57 Year
  Sex: Female
  Weight: 84 kg

DRUGS (10)
  1. INFLIXIMAB [Concomitant]
     Active Substance: INFLIXIMAB
  2. LISINOPRIL. [Concomitant]
     Active Substance: LISINOPRIL
  3. CYANOCOBALAMIN. [Concomitant]
     Active Substance: CYANOCOBALAMIN
  4. SUMATRIPTAN. [Concomitant]
     Active Substance: SUMATRIPTAN
  5. LOPERAMIDE [Concomitant]
     Active Substance: LOPERAMIDE
  6. LANSOPRAZOLE. [Concomitant]
     Active Substance: LANSOPRAZOLE
  7. METHOTREXATE. [Concomitant]
     Active Substance: METHOTREXATE
  8. SERTRALINE [Suspect]
     Active Substance: SERTRALINE HYDROCHLORIDE
     Indication: DEPRESSION
     Dosage: ALSO RECEIVED AS 50 MG DOSE FROM 25-MAY-2018, 100 MG DOSE FROM 26-JUL-2018.
     Route: 048
     Dates: start: 20180518, end: 20180525
  9. FOLIC ACID. [Concomitant]
     Active Substance: FOLIC ACID
  10. COLESEVELAM/COLESEVELAM HYDROCHLORIDE [Concomitant]

REACTIONS (7)
  - Sexual dysfunction [Recovering/Resolving]
  - Breast pain [Recovering/Resolving]
  - Nausea [Recovered/Resolved]
  - Haematochezia [Not Recovered/Not Resolved]
  - Breast enlargement [Not Recovered/Not Resolved]
  - Insomnia [Not Recovered/Not Resolved]
  - Breast mass [Recovering/Resolving]

NARRATIVE: CASE EVENT DATE: 20180620
